FAERS Safety Report 7580816-3 (Version None)
Quarter: 2011Q2

REPORT INFORMATION
  Report Type: 
  Country: None (occurrence: None)
  Receive Date: 20110622
  Receipt Date: 20110609
  Transmission Date: 20111010
  Serious: Yes (Other)
  Sender: FDA-Public Use
  Company Number: 2011P1007074

PATIENT
  Age: 48 Year
  Sex: Female

DRUGS (2)
  1. WARFARIN SODIUM [Suspect]
     Indication: AORTIC VALVE REPLACEMENT
  2. ASPIRIN [Suspect]
     Indication: AORTIC VALVE REPLACEMENT

REACTIONS (19)
  - ABDOMINAL TENDERNESS [None]
  - BLOOD PRESSURE DECREASED [None]
  - HAEMATOCRIT DECREASED [None]
  - FLUID OVERLOAD [None]
  - GROIN PAIN [None]
  - ABDOMINAL MASS [None]
  - HEART RATE INCREASED [None]
  - HAEMOGLOBIN DECREASED [None]
  - INTERNATIONAL NORMALISED RATIO DECREASED [None]
  - PAIN IN EXTREMITY [None]
  - NEUROPATHY PERIPHERAL [None]
  - DIZZINESS [None]
  - RETROPERITONEAL HAEMATOMA [None]
  - ANURIA [None]
  - RECTAL TENESMUS [None]
  - PARAESTHESIA [None]
  - ABDOMINAL COMPARTMENT SYNDROME [None]
  - HAEMORRHAGE [None]
  - ILIAC ARTERY OCCLUSION [None]
